FAERS Safety Report 13003074 (Version 2)
Quarter: 2017Q1

REPORT INFORMATION
  Report Type: Spontaneous
  Country: JP (occurrence: JP)
  Receive Date: 20161206
  Receipt Date: 20170131
  Transmission Date: 20170428
  Serious: Yes (Other)
  Sender: FDA-Public Use
  Company Number: JP-BAYER-2016-226434

PATIENT
  Age: 64 Year
  Sex: Male

DRUGS (6)
  1. HEPARIN [Suspect]
     Active Substance: HEPARIN SODIUM
     Indication: COAGULATION TIME ABNORMAL
     Dosage: 7000 IU, UNK
     Route: 042
  2. ATROPINE. [Concomitant]
     Active Substance: ATROPINE
     Dosage: 1 MG, UNK
     Route: 042
  3. TICLOPIDINE [Suspect]
     Active Substance: TICLOPIDINE
     Indication: ANTIPLATELET THERAPY
     Dosage: 200 MG, QD
  4. CILOSTAZOL. [Concomitant]
     Active Substance: CILOSTAZOL
     Dosage: 200 MG, QD
  5. ACETYLSALICYLIC ACID (} 100 MG) [Suspect]
     Active Substance: ASPIRIN
     Indication: ANTIPLATELET THERAPY
     Dosage: 100 MG, QD
  6. EDARAVONE [Concomitant]
     Active Substance: EDARAVONE
     Indication: COAGULATION TIME ABNORMAL
     Dosage: 30 MG, UNK

REACTIONS (2)
  - Subarachnoid haemorrhage [None]
  - Cerebral hyperperfusion syndrome [None]
